FAERS Safety Report 10428786 (Version 1)
Quarter: 2014Q3

REPORT INFORMATION
  Report Type: Spontaneous
  Country: US (occurrence: US)
  Receive Date: 20140904
  Receipt Date: 20140904
  Transmission Date: 20150326
  Serious: No
  Sender: FDA-Public Use
  Company Number: US-ASTRAZENECA-2014SE59025

PATIENT

DRUGS (8)
  1. BUDESONIDE. [Suspect]
     Active Substance: BUDESONIDE
     Route: 048
  2. ENTOCORT [Concomitant]
     Active Substance: BUDESONIDE
  3. REMICADE [Concomitant]
     Active Substance: INFLIXIMAB
  4. CIMZIA [Concomitant]
     Active Substance: CERTOLIZUMAB PEGOL
  5. CIPRO [Concomitant]
     Active Substance: CIPROFLOXACIN HYDROCHLORIDE
  6. ASACOL HD [Concomitant]
     Active Substance: MESALAMINE
  7. BENTYL [Concomitant]
     Active Substance: DICYCLOMINE HYDROCHLORIDE
  8. HUMIRA [Concomitant]
     Active Substance: ADALIMUMAB

REACTIONS (3)
  - Crohn^s disease [Unknown]
  - Urinary tract infection [Unknown]
  - Infection [Unknown]
